FAERS Safety Report 5444202-4 (Version None)
Quarter: 2007Q3

REPORT INFORMATION
  Report Type: 
  Country: None (occurrence: None)
  Receive Date: 20070906
  Receipt Date: 20070830
  Transmission Date: 20080115
  Serious: Yes (Other)
  Sender: FDA-Public Use
  Company Number: US-AMGEN-US241332

PATIENT
  Sex: Female

DRUGS (2)
  1. ENBREL [Suspect]
     Indication: PSORIATIC ARTHROPATHY
     Route: 058
     Dates: start: 20070626
  2. PLAQUENIL [Concomitant]
     Dates: start: 19920101

REACTIONS (5)
  - DYSPNOEA [None]
  - FATIGUE [None]
  - GENERALISED OEDEMA [None]
  - INSOMNIA [None]
  - WEIGHT INCREASED [None]
